FAERS Safety Report 6390416-9 (Version None)
Quarter: 2009Q4

REPORT INFORMATION
  Report Type: 
  Country: None (occurrence: None)
  Receive Date: 20091006
  Receipt Date: 20090925
  Transmission Date: 20100525
  Serious: Yes (Other)
  Sender: FDA-Public Use
  Company Number: US-BAYER-200933263NA

PATIENT
  Weight: 91 kg

DRUGS (1)
  1. MAGNEVIST [Suspect]
     Indication: NUCLEAR MAGNETIC RESONANCE IMAGING BRAIN
     Dosage: TOTAL DAILY DOSE: 20 ML
     Dates: start: 20090911, end: 20090911

REACTIONS (4)
  - DEEP VEIN THROMBOSIS [None]
  - ERYTHEMA [None]
  - INJECTION SITE PAIN [None]
  - PAIN IN EXTREMITY [None]
